FAERS Safety Report 17053727 (Version 1)
Quarter: 2019Q4

REPORT INFORMATION
  Report Type: Spontaneous
  Country: US (occurrence: US)
  Receive Date: 20191120
  Receipt Date: 20191120
  Transmission Date: 20200122
  Serious: No
  Sender: FDA-Public Use
  Company Number: US-JNJFOC-20191119644

PATIENT
  Sex: Female
  Weight: 131.66 kg

DRUGS (1)
  1. REMICADE [Suspect]
     Active Substance: INFLIXIMAB
     Indication: PRODUCT USED FOR UNKNOWN INDICATION
     Dosage: 4 OR 5 YEARS AGO
     Route: 042

REACTIONS (3)
  - Antibody test positive [Unknown]
  - Drug hypersensitivity [Unknown]
  - Arthralgia [Unknown]
